FAERS Safety Report 5550810-2 (Version None)
Quarter: 2007Q4

REPORT INFORMATION
  Report Type: 
  Country: None (occurrence: None)
  Receive Date: 20071212
  Receipt Date: 20070518
  Transmission Date: 20080405
  Serious: No
  Sender: FDA-Public Use
  Company Number: US-AMGEN-KDL223205

PATIENT
  Sex: Female

DRUGS (2)
  1. ENBREL [Suspect]
     Indication: RHEUMATOID ARTHRITIS
     Route: 058
     Dates: start: 20070219
  2. METHOTREXATE [Concomitant]
     Dates: start: 20040101

REACTIONS (9)
  - ABDOMINAL PAIN [None]
  - ARTHRALGIA [None]
  - BACK PAIN [None]
  - BACTERIAL INFECTION [None]
  - DYSURIA [None]
  - PAIN IN EXTREMITY [None]
  - PYREXIA [None]
  - URINARY TRACT INFECTION [None]
  - VAGINAL INFECTION [None]
